FAERS Safety Report 4527050-9 (Version None)
Quarter: 2004Q4

REPORT INFORMATION
  Report Type: 
  Country: None (occurrence: None)
  Receive Date: 20041129
  Receipt Date: 20040331
  Transmission Date: 20050328
  Serious: Yes (Hospitalization)
  Sender: FDA-Public Use
  Company Number: USA040463789

PATIENT
  Age: 36 Year
  Sex: Male

DRUGS (3)
  1. ZYPREXA [Suspect]
     Indication: BIPOLAR DISORDER
  2. VIRAMUNE [Concomitant]
  3. KLONOPIN [Concomitant]

REACTIONS (2)
  - RASH [None]
  - WEIGHT INCREASED [None]
